FAERS Safety Report 6681175-0 (Version None)
Quarter: 2010Q2

REPORT INFORMATION
  Report Type: 
  Country: None (occurrence: None)
  Receive Date: 20100414
  Receipt Date: 20100408
  Transmission Date: 20101027
  Serious: No
  Sender: FDA-Public Use
  Company Number: BR-ROCHE-658813

PATIENT
  Sex: Female
  Weight: 3.2 kg

DRUGS (2)
  1. TAMIFLU [Suspect]
     Indication: H1N1 INFLUENZA
     Route: 064
     Dates: start: 20090923
  2. SYNTHROID [Concomitant]
     Indication: THYROID DISORDER
     Dates: start: 20080501

REACTIONS (2)
  - NO ADVERSE EVENT [None]
  - NORMAL NEWBORN [None]
